FAERS Safety Report 18288746 (Version 1)
Quarter: 2020Q3

REPORT INFORMATION
  Report Type: Spontaneous
  Country: CA (occurrence: CA)
  Receive Date: 20200920
  Receipt Date: 20200920
  Transmission Date: 20201103
  Serious: Yes (Disabling)
  Sender: FDA-Public Use
  Company Number: None

PATIENT
  Age: 53 Year
  Sex: Female
  Weight: 52.65 kg

DRUGS (4)
  1. IBEPROPHEN [Concomitant]
  2. DEXTROAMPHETA SULF [Concomitant]
  3. SULFASALAZINE EC [Suspect]
     Active Substance: SULFASALAZINE
     Indication: ARTHRITIS
     Route: 048
  4. TYLENOL [Concomitant]
     Active Substance: ACETAMINOPHEN

REACTIONS (6)
  - Euphoric mood [None]
  - Dizziness [None]
  - Hyperhidrosis [None]
  - Somnolence [None]
  - Vomiting projectile [None]
  - Feeling abnormal [None]

NARRATIVE: CASE EVENT DATE: 20200916
